FAERS Safety Report 8231139-0 (Version None)
Quarter: 2012Q1

REPORT INFORMATION
  Report Type: 
  Country: None (occurrence: None)
  Receive Date: 20120323
  Receipt Date: 20120312
  Transmission Date: 20120608
  Serious: Yes (Death, Hospitalization)
  Sender: FDA-Public Use
  Company Number: DE-PFIZER INC-2011279560

PATIENT
  Age: 71 Year
  Sex: Female

DRUGS (6)
  1. ACETYLSALICYLIC ACID [Concomitant]
     Dosage: UNK
     Dates: start: 20101216, end: 20101216
  2. ALDOSTERONE [Concomitant]
     Dosage: UNK
     Dates: start: 20101026, end: 20101026
  3. ANGIOTENSINAMIDE [Concomitant]
     Dosage: UNK
     Dates: start: 20101026, end: 20101026
  4. ACETYLSALICYLIC ACID [Concomitant]
     Dosage: UNK
     Dates: start: 20101226, end: 20101226
  5. BLINDED THERAPY [Suspect]
     Indication: TYPE 2 DIABETES MELLITUS
     Dosage: UNK
     Dates: start: 20101027, end: 20110111
  6. CLINDAMYCIN HCL [Suspect]
     Indication: GINGIVITIS
     Dosage: 150 MG, UNK
     Route: 048
     Dates: start: 20101214, end: 20101219

REACTIONS (4)
  - HYPERSENSITIVITY [None]
  - RENAL FAILURE ACUTE [None]
  - INTESTINAL INFARCTION [None]
  - MULTI-ORGAN FAILURE [None]
